FAERS Safety Report 6770081-9 (Version None)
Quarter: 2010Q2

REPORT INFORMATION
  Report Type: 
  Country: None (occurrence: None)
  Receive Date: 20100615
  Receipt Date: 20100416
  Transmission Date: 20101027
  Serious: Yes (Hospitalization, Other)
  Sender: FDA-Public Use
  Company Number: US-BAYER-200924409NA

PATIENT
  Age: 28 Year
  Sex: Female
  Weight: 60 kg

DRUGS (5)
  1. YAZ [Suspect]
     Indication: CONTRACEPTION
     Route: 048
  2. YASMIN [Suspect]
     Indication: CONTRACEPTION
     Route: 048
     Dates: start: 20060101, end: 20080101
  3. PROTONIX [Concomitant]
  4. ACETAMINOPHEN [Concomitant]
  5. ZOFRAN [Concomitant]
     Indication: NAUSEA

REACTIONS (8)
  - ABDOMINAL PAIN UPPER [None]
  - BILE DUCT STONE [None]
  - CHILLS [None]
  - CHOLECYSTITIS ACUTE [None]
  - HYPOTHYROIDISM [None]
  - NAUSEA [None]
  - PAIN [None]
  - VOMITING [None]
